FAERS Safety Report 24166531 (Version 1)
Quarter: 2024Q3

REPORT INFORMATION
  Report Type: Spontaneous
  Country: US (occurrence: US)
  Receive Date: 20240802
  Receipt Date: 20240802
  Transmission Date: 20241017
  Serious: Yes (Other)
  Sender: STRIDES
  Company Number: US-STRIDES ARCOLAB LIMITED-2024SP009332

PATIENT
  Age: 60 Year
  Sex: Female

DRUGS (4)
  1. RANITIDINE [Suspect]
     Active Substance: RANITIDINE
     Indication: Dyspepsia
     Dosage: 25 MILLIGRAM, QD RANITIDINE (ZANTAC) (OVER THE COUNTER) (TABLET)
     Route: 065
     Dates: start: 1996, end: 2019
  2. RANITIDINE [Suspect]
     Active Substance: RANITIDINE
     Dosage: 150 MILLIGRAM, QD RANITIDINE (ZANTAC) (OVER THE COUNTER) (CAPSULE)
     Route: 065
     Dates: start: 1996, end: 2019
  3. RANITIDINE [Suspect]
     Active Substance: RANITIDINE
     Dosage: 25 MILLIGRAM, QD (DAILY AS NEEDED) RANITIDINE (OVER THE COUNTER) (TABLET)
     Route: 065
     Dates: start: 1997, end: 2019
  4. RANITIDINE [Suspect]
     Active Substance: RANITIDINE
     Dosage: 150 MILLIGRAM, QD (DAILY AS NEEDED) RANITIDINE (OVER THE COUNTER) (CAPSULE)
     Route: 065
     Dates: start: 1997, end: 2019

REACTIONS (2)
  - Colorectal cancer [Unknown]
  - Gastrointestinal carcinoma [Unknown]

NARRATIVE: CASE EVENT DATE: 20190801
